FAERS Safety Report 6746763-1 (Version None)
Quarter: 2010Q2

REPORT INFORMATION
  Report Type: 
  Country: None (occurrence: None)
  Receive Date: 20100528
  Receipt Date: 20090819
  Transmission Date: 20101027
  Serious: Yes (Disabling)
  Sender: FDA-Public Use
  Company Number: A0803864A

PATIENT
  Sex: Male

DRUGS (4)
  1. VENTOLIN [Suspect]
     Indication: ASTHMA
     Route: 055
     Dates: start: 20090101, end: 20090813
  2. ADVAIR DISKUS 100/50 [Concomitant]
  3. ZITHROMAX [Concomitant]
  4. LEVAQUIN [Concomitant]

REACTIONS (1)
  - COUGH [None]
